FAERS Safety Report 8947845 (Version 1)
Quarter: 2012Q4

REPORT INFORMATION
  Report Type: Spontaneous
  Country: DK (occurrence: None)
  Receive Date: 20121127
  Receipt Date: 20121127
  Transmission Date: 20130627
  Serious: Yes (Hospitalization)
  Sender: FDA-Public Use
  Company Number: 2012MA013499

PATIENT
  Age: 47 Year
  Sex: Female

DRUGS (5)
  1. CLONAZEPAM [Suspect]
     Route: 048
  2. CLOZARIL (CLOZAPINE) [Suspect]
     Route: 048
  3. HYOSCINE HYDROBROMIDE [Suspect]
     Route: 048
  4. CLOMIPRAMINE [Suspect]
     Route: 048
  5. AMISULPRIDE [Suspect]
     Route: 048

REACTIONS (3)
  - Incorrect dose administered [None]
  - Emotional distress [None]
  - Intentional drug misuse [None]
